FAERS Safety Report 4496094-8 (Version None)
Quarter: 2004Q4

REPORT INFORMATION
  Report Type: 
  Country: None (occurrence: None)
  Receive Date: 20041108
  Receipt Date: 20041103
  Transmission Date: 20050328
  Serious: Yes (Other)
  Sender: FDA-Public Use
  Company Number: CA-MERCK-0411CAN00062

PATIENT
  Sex: Female

DRUGS (3)
  1. VIOXX [Suspect]
     Indication: LOCALISED OSTEOARTHRITIS
     Route: 048
     Dates: start: 20000101, end: 20040701
  2. VIOXX [Suspect]
     Indication: FIBROMYALGIA
     Route: 048
     Dates: start: 20000101, end: 20040701
  3. ASPIRIN [Concomitant]
     Route: 065

REACTIONS (4)
  - CEREBROVASCULAR ACCIDENT [None]
  - GASTRIC DISORDER [None]
  - INTESTINAL FUNCTIONAL DISORDER [None]
  - TRANSIENT ISCHAEMIC ATTACK [None]
